FAERS Safety Report 5080099-2 (Version None)
Quarter: 2006Q3

REPORT INFORMATION
  Report Type: 
  Country: None (occurrence: None)
  Receive Date: 20060809
  Receipt Date: 20060803
  Transmission Date: 20061208
  Serious: Yes (Hospitalization)
  Sender: FDA-Public Use
  Company Number: THQ2006A00337

PATIENT
  Age: 54 Year
  Sex: Female

DRUGS (11)
  1. ACTOS [Suspect]
     Indication: DIABETES MELLITUS
  2. AUGMENTIN '125' [Concomitant]
  3. OROXINE               (LEVOTHYROXINE SODIUM) [Concomitant]
  4. BETALOC             (METOPROLOL TARTRATE) [Concomitant]
  5. LASIX [Concomitant]
  6. DIABEX                      (METFORMIN HYDROCHLORIDE) [Concomitant]
  7. INSULIN [Concomitant]
  8. PANTOPRAZOLE SODIUM [Concomitant]
  9. ASPIRIN [Concomitant]
  10. ALDACTONE [Concomitant]
  11. LIPITOR [Concomitant]

REACTIONS (1)
  - CARDIAC FAILURE CONGESTIVE [None]
